FAERS Safety Report 7509958-5 (Version None)
Quarter: 2011Q2

REPORT INFORMATION
  Report Type: 
  Country: None (occurrence: None)
  Receive Date: 20110527
  Receipt Date: 20110519
  Transmission Date: 20111010
  Serious: Yes (Other)
  Sender: FDA-Public Use
  Company Number: US-GENZYME-CART-1000068

PATIENT

DRUGS (3)
  1. IBUPROFEN [Concomitant]
     Indication: ARTHRALGIA
  2. CARTICEL [Suspect]
     Indication: OSTEOCHONDROSIS
     Dosage: UNK
     Dates: start: 19990614, end: 19990614
  3. ACETAMINOPHEN [Concomitant]
     Indication: ARTHRALGIA

REACTIONS (2)
  - JOINT RANGE OF MOTION DECREASED [None]
  - ARTHRALGIA [None]
